FAERS Safety Report 12839311 (Version 3)
Quarter: 2016Q4

REPORT INFORMATION
  Report Type: Spontaneous
  Country: US (occurrence: JP)
  Receive Date: 20161012
  Receipt Date: 20161109
  Transmission Date: 20170207
  Serious: Yes (Hospitalization)
  Sender: FDA-Public Use
  Company Number: JP-009507513-1608JPN013189

PATIENT
  Age: 47 Year
  Sex: Male
  Weight: 73 kg

DRUGS (30)
  1. AMLODIPINE BESYLATE. [Suspect]
     Active Substance: AMLODIPINE BESYLATE
     Indication: HYPERTENSION
     Dosage: 1 DF, QD
     Route: 048
     Dates: start: 20160714, end: 20160817
  2. VASOLAN [Suspect]
     Active Substance: VERAPAMIL HYDROCHLORIDE
     Indication: TACHYCARDIA PAROXYSMAL
     Dosage: 2 ML, QD
     Route: 050
     Dates: start: 20160720, end: 20160729
  3. PROPOFOL. [Concomitant]
     Active Substance: PROPOFOL
     Dosage: UNK
     Dates: start: 20160713
  4. MAINTATE [Suspect]
     Active Substance: BISOPROLOL FUMARATE
     Dosage: 1 DF, QD
     Route: 048
     Dates: start: 20160825
  5. BFLUID [Suspect]
     Active Substance: AMINO ACIDS\DEXTROSE\ELECTROLYTES NOS\VITAMINS
     Indication: NUTRITIONAL SUPPLEMENTATION
     Dosage: 500 ML, BID
     Route: 050
     Dates: start: 20160715, end: 20160726
  6. ELIQUIS [Suspect]
     Active Substance: APIXABAN
     Indication: CEREBROVASCULAR ACCIDENT PROPHYLAXIS
     Dosage: UNK
     Route: 065
  7. CATABON [Concomitant]
     Active Substance: DOPAMINE HYDROCHLORIDE
     Dosage: UNK
     Dates: start: 20160713, end: 20160713
  8. FENTANYL CITRATE. [Concomitant]
     Active Substance: FENTANYL CITRATE
     Dosage: UNK
     Dates: start: 20160713, end: 20160713
  9. ULTIVA [Concomitant]
     Active Substance: REMIFENTANIL HYDROCHLORIDE
     Dosage: UNK
     Dates: start: 20160713
  10. HERBAL NOS [Suspect]
     Active Substance: HERBALS
     Indication: CONSTIPATION
     Dosage: 2.5 G, TID
     Route: 048
     Dates: start: 20160720, end: 20160728
  11. MALFA [Suspect]
     Active Substance: ALUMINUM HYDROXIDE\MAGNESIUM HYDROXIDE
     Indication: GASTRIC ULCER
     Dosage: 14 ML, TID
     Route: 048
     Dates: start: 20160716, end: 20160729
  12. LASIX [Suspect]
     Active Substance: FUROSEMIDE
     Indication: CARDIAC FAILURE
     Dosage: 1 DF, QD
     Route: 048
     Dates: start: 20160716, end: 20160817
  13. ESLAX INTRAVENOUS 25MG/2.5ML [Suspect]
     Active Substance: ROCURONIUM BROMIDE
     Dosage: UNK
     Route: 042
     Dates: start: 20160713
  14. LOXOPROFEN SODIUM [Suspect]
     Active Substance: LOXOPROFEN SODIUM
     Indication: PRODUCT USED FOR UNKNOWN INDICATION
     Dosage: UNK
     Route: 048
     Dates: start: 20160717, end: 20160729
  15. DIPRIVAN [Concomitant]
     Active Substance: PROPOFOL
     Dosage: UNK
     Dates: start: 20160713, end: 20160719
  16. NEOSYNESIN [Concomitant]
     Active Substance: PHENYLEPHRINE HYDROCHLORIDE
     Dosage: UNK
     Dates: start: 20160713
  17. NICARDIPINE HYDROCHLORIDE. [Concomitant]
     Active Substance: NICARDIPINE HYDROCHLORIDE
     Dosage: UNK
     Dates: start: 20160714, end: 20160721
  18. LANSOPRAZOLE. [Suspect]
     Active Substance: LANSOPRAZOLE
     Dosage: 1 DF, QD
     Route: 048
     Dates: start: 20160721, end: 20160728
  19. ONOACT [Concomitant]
     Active Substance: LANDIOLOL HYDROCHLORIDE
     Dosage: UNK
     Dates: start: 20160713, end: 20160714
  20. MAINTATE [Suspect]
     Active Substance: BISOPROLOL FUMARATE
     Indication: TACHYCARDIA
     Dosage: 1 DF, QD
     Route: 048
     Dates: start: 20160714, end: 20160816
  21. ESLAX INTRAVENOUS 25MG/2.5ML [Suspect]
     Active Substance: ROCURONIUM BROMIDE
     Indication: ANAESTHESIA PROCEDURE
     Dosage: UNK
     Route: 042
     Dates: start: 20130720
  22. ESLAX INTRAVENOUS 25MG/2.5ML [Suspect]
     Active Substance: ROCURONIUM BROMIDE
     Dosage: UNK
     Route: 042
     Dates: start: 20130816
  23. OLMESARTAN MEDOXOMIL. [Suspect]
     Active Substance: OLMESARTAN MEDOXOMIL
     Indication: HYPERTENSION
     Dosage: UNK, QD
     Route: 048
     Dates: start: 20160721, end: 20160728
  24. LANSOPRAZOLE. [Suspect]
     Active Substance: LANSOPRAZOLE
     Indication: GASTRIC ULCER
     Dosage: UNK
     Route: 065
     Dates: start: 20160714, end: 20160715
  25. SEVOFLURANE. [Concomitant]
     Active Substance: SEVOFLURANE
     Dosage: UNK
     Dates: start: 20160713, end: 20160713
  26. HERBAL NOS [Suspect]
     Active Substance: HERBALS
     Indication: GASTROINTESTINAL MOTILITY DISORDER
  27. LASIX [Suspect]
     Active Substance: FUROSEMIDE
     Indication: HYPERTENSION
  28. CEFAZOLIN SODIUM. [Suspect]
     Active Substance: CEFAZOLIN SODIUM
     Indication: SURGERY
     Dosage: UNK
     Route: 041
     Dates: start: 20160713, end: 20160714
  29. CEFAZOLIN SODIUM. [Suspect]
     Active Substance: CEFAZOLIN SODIUM
     Dosage: UNK
     Route: 041
     Dates: start: 20160816
  30. BREVIBLOC [Concomitant]
     Active Substance: ESMOLOL HYDROCHLORIDE
     Dosage: UNK
     Dates: start: 20160713

REACTIONS (2)
  - Drug eruption [Unknown]
  - Hepatic function abnormal [Recovering/Resolving]

NARRATIVE: CASE EVENT DATE: 20160725
